FAERS Safety Report 6942857-6 (Version None)
Quarter: 2010Q3

REPORT INFORMATION
  Report Type: 
  Country: None (occurrence: None)
  Receive Date: 20100826
  Receipt Date: 20100813
  Transmission Date: 20110219
  Serious: Yes (Death)
  Sender: FDA-Public Use
  Company Number: GB-ELI_LILLY_AND_COMPANY-GB201008004061

PATIENT
  Age: 42 Year
  Sex: Male
  Weight: 108 kg

DRUGS (9)
  1. ZYPREXA [Suspect]
     Indication: BIPOLAR DISORDER
     Dosage: UNK, UNKNOWN
  2. CARBAMAZEPINE [Concomitant]
     Indication: BIPOLAR DISORDER
     Dosage: UNK, UNKNOWN
  3. CARBAMAZEPINE [Concomitant]
     Dosage: UNK, UNKNOWN
  4. ZOPICLONE [Concomitant]
  5. LEVOTHYROXINE SODIUM [Concomitant]
  6. CITALOPRAM HYDROBROMIDE [Concomitant]
     Indication: BIPOLAR DISORDER
  7. FEXOFENADINE HCL [Concomitant]
  8. OMEPRAZOLE [Concomitant]
  9. SIMVASTATIN [Concomitant]

REACTIONS (3)
  - ARRHYTHMIA [None]
  - ELECTROCARDIOGRAM QT PROLONGED [None]
  - HEPATIC STEATOSIS [None]
